FAERS Safety Report 13739141 (Version 1)
Quarter: 2017Q3

REPORT INFORMATION
  Report Type: Spontaneous
  Country: US (occurrence: US)
  Receive Date: 20170710
  Receipt Date: 20170710
  Transmission Date: 20171127
  Serious: Yes (Hospitalization, Other)
  Sender: FDA-Public Use
  Company Number: US-SAOL THERAPEUTICS-2017SAO00811

PATIENT
  Age: 10 Year
  Sex: Female

DRUGS (1)
  1. BACLOFEN. [Suspect]
     Active Substance: BACLOFEN
     Indication: MOVEMENT DISORDER
     Dosage: 500.1 ?G, \DAY
     Route: 037
     Dates: start: 20170417

REACTIONS (3)
  - Device failure [Recovered/Resolved]
  - Off label use [Unknown]
  - Coma [Recovered/Resolved]

NARRATIVE: CASE EVENT DATE: 201703
